FAERS Safety Report 5718730-8 (Version None)
Quarter: 2008Q2

REPORT INFORMATION
  Report Type: 
  Country: None (occurrence: None)
  Receive Date: 20080425
  Receipt Date: 20080415
  Transmission Date: 20081010
  Serious: Yes (Hospitalization)
  Sender: FDA-Public Use
  Company Number: FR-PFIZER INC-2008033956

PATIENT
  Sex: Female

DRUGS (12)
  1. ZOLOFT [Suspect]
     Route: 048
  2. SOTALOL HCL [Suspect]
     Route: 048
  3. FORLAX [Suspect]
  4. BIPRETERAX [Suspect]
     Dosage: TEXT:4/1.25MG; TDD: 4/1.25MG
     Route: 048
  5. PHYSIOTENS [Concomitant]
     Dosage: DAILY DOSE:.4MG
  6. IPERTEN [Concomitant]
     Route: 048
  7. PLAVIX [Concomitant]
     Route: 048
  8. METFORMIN HCL [Concomitant]
     Route: 048
  9. ACTONEL [Concomitant]
  10. CACIT D3 [Concomitant]
  11. ACETAMINOPHEN [Concomitant]
     Dosage: DAILY DOSE:2GRAM
  12. CETORNAN [Concomitant]

REACTIONS (5)
  - ATRIAL FIBRILLATION [None]
  - CONFUSIONAL STATE [None]
  - ELECTROCARDIOGRAM QT PROLONGED [None]
  - HYPOKALAEMIA [None]
  - HYPONATRAEMIA [None]
